FAERS Safety Report 13983999 (Version 2)
Quarter: 2018Q1

REPORT INFORMATION
  Report Type: Report from Study
  Country: US (occurrence: US)
  Receive Date: 20170918
  Receipt Date: 20180130
  Transmission Date: 20180508
  Serious: Yes (Other)
  Sender: FDA-Public Use
  Company Number: US-ACTELION-A-NJ2017-159105

PATIENT
  Age: 57 Year
  Sex: Female
  Weight: 74.83 kg

DRUGS (3)
  1. TRACLEER [Suspect]
     Active Substance: BOSENTAN
     Indication: PULMONARY ARTERIAL HYPERTENSION
     Dosage: 125 MG, BID
     Route: 048
  2. COUMADIN [Concomitant]
     Active Substance: WARFARIN SODIUM
  3. ADEMPAS [Concomitant]
     Active Substance: RIOCIGUAT

REACTIONS (7)
  - Anxiety [Unknown]
  - Dyspnoea [Unknown]
  - Localised oedema [Unknown]
  - Chest pain [Unknown]
  - Pulmonary oedema [Unknown]
  - Pain [Unknown]
  - Oxygen consumption increased [Unknown]
